FAERS Safety Report 4383676-7 (Version None)
Quarter: 2004Q2

REPORT INFORMATION
  Report Type: 
  Country: None (occurrence: None)
  Receive Date: 20040623
  Receipt Date: 20040609
  Transmission Date: 20050107
  Serious: Yes (Hospitalization)
  Sender: FDA-Public Use
  Company Number: CH-GLAXOSMITHKLINE-B0335900A

PATIENT
  Age: 33 Year
  Sex: Female

DRUGS (5)
  1. DEROXAT [Suspect]
     Indication: POST-TRAUMATIC STRESS DISORDER
     Dosage: 10MG PER DAY
     Route: 048
     Dates: start: 20031226, end: 20040119
  2. LEVOTHYROXIN SODIUM [Concomitant]
     Indication: HYPOTHYROIDISM
     Dosage: 100MCG PER DAY
     Route: 048
     Dates: start: 20030101
  3. REBOXETINE [Concomitant]
     Route: 048
     Dates: start: 20040114, end: 20040117
  4. EFFEXOR [Concomitant]
     Route: 048
     Dates: start: 20040115
  5. METHOTRIMEPRAZINE [Concomitant]
     Route: 048
     Dates: start: 20040120

REACTIONS (9)
  - AGITATION [None]
  - DEPRESSIVE SYMPTOM [None]
  - EUPHORIC MOOD [None]
  - HEADACHE [None]
  - HYPOMANIA [None]
  - INAPPROPRIATE AFFECT [None]
  - MAJOR DEPRESSION [None]
  - NAUSEA [None]
  - RESTLESSNESS [None]
